FAERS Safety Report 14531297 (Version 2)
Quarter: 2018Q2

REPORT INFORMATION
  Report Type: Report from Study
  Country: US (occurrence: US)
  Receive Date: 20180214
  Receipt Date: 20180406
  Transmission Date: 20180711
  Serious: Yes (Death)
  Sender: FDA-Public Use
  Company Number: US-ASTRAZENECA-2018SE16451

PATIENT
  Age: 30909 Day
  Sex: Female

DRUGS (1)
  1. TAGRISSO [Suspect]
     Active Substance: OSIMERTINIB
     Indication: NON-SMALL CELL LUNG CANCER METASTATIC
     Route: 048
     Dates: start: 20171014, end: 20180130

REACTIONS (2)
  - Pneumothorax spontaneous [Fatal]
  - Neoplasm skin [Unknown]

NARRATIVE: CASE EVENT DATE: 20180203
